FAERS Safety Report 8329098-5 (Version None)
Quarter: 2012Q2

REPORT INFORMATION
  Report Type: 
  Country: None (occurrence: None)
  Receive Date: 20120502
  Receipt Date: 20120425
  Transmission Date: 20120825
  Serious: Yes (Other)
  Sender: FDA-Public Use
  Company Number: JP-PFIZER INC-2012102757

PATIENT
  Age: 79 Year
  Sex: Male

DRUGS (2)
  1. METHOTREXATE [Suspect]
     Indication: BLADDER CANCER
     Dosage: 30 MG/M2, UNK
     Route: 042
     Dates: start: 20080110, end: 20080207
  2. CISPLATIN [Suspect]
     Indication: BLADDER CANCER
     Dosage: 70 MG/M2, UNK
     Route: 013
     Dates: start: 20080110, end: 20080207

REACTIONS (3)
  - FREQUENT BOWEL MOVEMENTS [None]
  - DIARRHOEA [None]
  - ABDOMINAL DISTENSION [None]
